FAERS Safety Report 5313239-8 (Version None)
Quarter: 2007Q2

REPORT INFORMATION
  Report Type: 
  Country: None (occurrence: None)
  Receive Date: 20070501
  Receipt Date: 20070419
  Transmission Date: 20071010
  Serious: Yes (Hospitalization)
  Sender: FDA-Public Use
  Company Number: PHEH2007US06012

PATIENT
  Age: 38 Year
  Sex: Female
  Weight: 85.714 kg

DRUGS (4)
  1. GLEEVEC [Suspect]
     Indication: ACUTE LYMPHOCYTIC LEUKAEMIA
     Dosage: 400 MG, QD
     Route: 048
     Dates: end: 20070401
  2. NEUPOGEN [Concomitant]
     Route: 058
     Dates: end: 20070401
  3. VINCRISTINE [Concomitant]
  4. CHEMOTHERAPEUTICS NOS [Concomitant]

REACTIONS (4)
  - CHEST X-RAY ABNORMAL [None]
  - CRYPTOGENIC ORGANISING PNEUMONIA [None]
  - PNEUMONITIS [None]
  - PYREXIA [None]
